FAERS Safety Report 9967887 (Version 3)
Quarter: 2014Q2

REPORT INFORMATION
  Report Type: Spontaneous
  Country: CA (occurrence: CA)
  Receive Date: 20140306
  Receipt Date: 20140425
  Transmission Date: 20141212
  Serious: Yes (Life-Threatening, Hospitalization, Other)
  Sender: FDA-Public Use
  Company Number: CA-ROCHE-1359046

PATIENT
  Age: 71 Year
  Sex: Male
  Weight: 70.8 kg

DRUGS (11)
  1. RITUXAN [Suspect]
     Indication: HAIRY CELL LEUKAEMIA
     Route: 042
     Dates: start: 2009, end: 2009
  2. LEVITRA [Concomitant]
     Dosage: STARTED PRIOR TO RITUXIMAB
     Route: 065
  3. VITAMIN E [Concomitant]
     Route: 065
     Dates: start: 2000
  4. VITAMIN B12 [Concomitant]
     Dosage: STARTED PRIOR TO RITUXIMAB.
     Route: 065
  5. METFORMIN [Concomitant]
     Route: 065
     Dates: start: 201308
  6. LISINOPRIL [Concomitant]
     Dosage: NOVA
     Route: 065
  7. ATORVASTATIN CALCIUM [Concomitant]
  8. BISOPROLOL [Concomitant]
     Dosage: STARTED SOMETIME AFTER RITUXIMAB.
     Route: 065
  9. PLAVIX [Concomitant]
     Route: 065
     Dates: start: 201312
  10. FUROSEMIDE [Concomitant]
     Route: 065
     Dates: start: 20140220
  11. ASA [Concomitant]
     Dosage: STARTED AFTER RITUXIMAB AT LOW DOSE.
     Route: 065

REACTIONS (6)
  - Myocardial infarction [Unknown]
  - Chronic obstructive pulmonary disease [Unknown]
  - Type 2 diabetes mellitus [Unknown]
  - Blood cholesterol increased [Unknown]
  - Arrhythmia [Unknown]
  - Off label use [Unknown]
